FAERS Safety Report 7757063-5 (Version None)
Quarter: 2011Q3

REPORT INFORMATION
  Report Type: 
  Country: None (occurrence: None)
  Receive Date: 20110916
  Receipt Date: 20110908
  Transmission Date: 20111222
  Serious: Yes (Disabling)
  Sender: FDA-Public Use
  Company Number: US-VERTEX PHARMACEUTICALS INC.-AE-2011-000397

PATIENT
  Sex: Male
  Weight: 75.364 kg

DRUGS (11)
  1. RIBAVIRIN [Suspect]
     Dates: start: 20110621
  2. RIBAVIRIN [Suspect]
     Indication: HEPATITIS C
     Dates: start: 20110504, end: 20110620
  3. PEGINTERFERON ALFA-2A [Suspect]
     Indication: HEPATITIS C
     Route: 058
     Dates: start: 20110504
  4. BISMUTH SUBSALICYLATE [Concomitant]
     Indication: DIARRHOEA
     Route: 048
  5. M.V.I. [Concomitant]
     Indication: MEDICAL DIET
  6. SERTRALINE HYDROCHLORIDE [Concomitant]
     Dates: start: 20110518
  7. VX-950 [Suspect]
     Indication: HEPATITIS C
     Route: 048
     Dates: start: 20110504, end: 20110630
  8. B VITAMIN COMPLEX [Concomitant]
     Indication: NUTRITIONAL SUPPORT
  9. ONDANSETRON [Concomitant]
     Indication: NAUSEA
     Dates: start: 20110506
  10. LOVAZA [Concomitant]
     Indication: NUTRITIONAL SUPPORT
  11. TYLENOL-500 [Concomitant]
     Indication: HEADACHE

REACTIONS (2)
  - FATIGUE [None]
  - ANAEMIA [None]
